FAERS Safety Report 14633492 (Version 5)
Quarter: 2018Q2

REPORT INFORMATION
  Report Type: Report from Study
  Country: None (occurrence: TR)
  Receive Date: 20180314
  Receipt Date: 20180511
  Transmission Date: 20180711
  Serious: Yes (Hospitalization)
  Sender: FDA-Public Use
  Company Number: TR-ABBVIE-18K-161-2284150-00

PATIENT
  Age: 77 Year
  Sex: Female
  Weight: 55 kg

DRUGS (11)
  1. DUODOPA [Suspect]
     Active Substance: CARBIDOPA\LEVODOPA
     Dosage: CONTINUOUS DOSE: 3.40 ML
     Route: 050
     Dates: start: 20180308, end: 20180410
  2. DUODOPA [Suspect]
     Active Substance: CARBIDOPA\LEVODOPA
     Indication: PARKINSON^S DISEASE
     Dosage: MORNING DOSE: 8.00 ML?CONTINUOUS DOSE: 3.20 ML?EXTRA DOSE: 1.00 ML
     Route: 050
     Dates: start: 20171226
  3. DUODOPA [Suspect]
     Active Substance: CARBIDOPA\LEVODOPA
     Dosage: MORNING DOSE: 8.00 ML?CONTINUOUS DOSE: 3.40 ML?EXTRA DOSE: 1.00 ML
     Route: 050
  4. APO-GO [Concomitant]
     Active Substance: APOMORPHINE
     Indication: PARKINSON^S DISEASE
     Dosage: BETWEEN 24.00- 08.00 O^CLOCK
     Route: 058
     Dates: start: 2010
  5. DUODOPA [Suspect]
     Active Substance: CARBIDOPA\LEVODOPA
     Dosage: CONTINUOUS DOSE: 3.20 ML
     Route: 050
     Dates: end: 20180308
  6. MOTILIUM [Concomitant]
     Active Substance: DOMPERIDONE
     Indication: CONSTIPATION
     Route: 048
     Dates: start: 2003
  7. NERVOGIL [Concomitant]
     Indication: PARKINSON^S DISEASE
     Route: 048
     Dates: start: 2010
  8. DELIX [Concomitant]
     Active Substance: RAMIPRIL
     Indication: HYPERTENSION
     Route: 048
     Dates: start: 2012
  9. DUODOPA [Suspect]
     Active Substance: CARBIDOPA\LEVODOPA
     Dosage: MORNING DOSE: 8.00 ML?CONTINUOUS DOSE: 3.40 ML?EXTRA DOSE: 1.00 ML
     Route: 050
     Dates: start: 20180411, end: 20180509
  10. NEXIUM [Concomitant]
     Active Substance: ESOMEPRAZOLE MAGNESIUM
     Indication: PROPHYLAXIS
     Route: 048
     Dates: start: 2012
  11. GERICA [Concomitant]
     Indication: ANALGESIC THERAPY
     Route: 048
     Dates: start: 2003

REACTIONS (3)
  - Pain [Not Recovered/Not Resolved]
  - Decreased appetite [Not Recovered/Not Resolved]
  - Parkinson^s disease [Not Recovered/Not Resolved]

NARRATIVE: CASE EVENT DATE: 201802
